FAERS Safety Report 6943366-0 (Version None)
Quarter: 2010Q3

REPORT INFORMATION
  Report Type: 
  Country: None (occurrence: None)
  Receive Date: 20100826
  Receipt Date: 20100818
  Transmission Date: 20110219
  Serious: Yes (Hospitalization, Other)
  Sender: FDA-Public Use
  Company Number: US-ABBOTT-10P-163-0660704-00

PATIENT
  Sex: Male
  Weight: 59.02 kg

DRUGS (7)
  1. HUMIRA [Suspect]
     Indication: CROHN'S DISEASE
     Dates: start: 20100601
  2. ISONIAZID [Concomitant]
     Indication: TUBERCULOSIS
  3. ATRIPLA [Concomitant]
     Indication: HIV INFECTION
  4. BELLADONNA [Concomitant]
     Indication: PRODUCT USED FOR UNKNOWN INDICATION
  5. COMPAZINE [Concomitant]
     Indication: PRODUCT USED FOR UNKNOWN INDICATION
  6. VITAMIN B6 [Concomitant]
     Indication: PRODUCT USED FOR UNKNOWN INDICATION
  7. MARINOL [Concomitant]
     Indication: PRODUCT USED FOR UNKNOWN INDICATION

REACTIONS (17)
  - ABDOMINAL PAIN [None]
  - ABDOMINAL PAIN UPPER [None]
  - ABSCESS LIMB [None]
  - BILE DUCT OBSTRUCTION [None]
  - BILIARY DYSKINESIA [None]
  - CHEST PAIN [None]
  - DECREASED APPETITE [None]
  - DEHYDRATION [None]
  - ENTERITIS [None]
  - HERPES VIRUS INFECTION [None]
  - INJECTION SITE PAIN [None]
  - NAUSEA [None]
  - RENAL FUNCTION TEST ABNORMAL [None]
  - RESPIRATORY TRACT INFECTION [None]
  - RESPIRATORY TRACT INFECTION FUNGAL [None]
  - SKIN ULCER [None]
  - VOMITING [None]
